FAERS Safety Report 5729551-4 (Version None)
Quarter: 2008Q2

REPORT INFORMATION
  Report Type: 
  Country: None (occurrence: None)
  Receive Date: 20080501
  Receipt Date: 20080421
  Transmission Date: 20081010
  Serious: Yes (Other)
  Sender: FDA-Public Use
  Company Number: CHNY2008JP01754

PATIENT
  Age: 51 Year
  Sex: Female

DRUGS (1)
  1. NICOTINE [Suspect]
     Indication: SMOKING CESSATION THERAPY
     Dosage: 21 MG, QD, TRANSDERMAL
     Dates: start: 20080318, end: 20080414

REACTIONS (26)
  - ABNORMAL DREAMS [None]
  - APPLICATION SITE ERYTHEMA [None]
  - BLISTER [None]
  - DERMATITIS CONTACT [None]
  - DIARRHOEA [None]
  - DYSPEPSIA [None]
  - ERYTHEMA [None]
  - FATIGUE [None]
  - FEELING ABNORMAL [None]
  - HOT FLUSH [None]
  - HYPERHIDROSIS [None]
  - INFLAMMATION [None]
  - INSOMNIA [None]
  - NERVOUSNESS [None]
  - NICOTINE DEPENDENCE [None]
  - POOR QUALITY SLEEP [None]
  - PRURITUS [None]
  - PYREXIA [None]
  - RASH [None]
  - REFLUX GASTRITIS [None]
  - SENSORY DISTURBANCE [None]
  - SKIN DISORDER [None]
  - SKIN EXFOLIATION [None]
  - SKIN HYPERTROPHY [None]
  - SWELLING [None]
  - VISUAL DISTURBANCE [None]
